FAERS Safety Report 4278835-8 (Version None)
Quarter: 2004Q1

REPORT INFORMATION
  Report Type: 
  Country: None (occurrence: None)
  Receive Date: 20040122
  Receipt Date: 20040113
  Transmission Date: 20041129
  Serious: Yes (Hospitalization, Other)
  Sender: FDA-Public Use
  Company Number: HQWYE267113JAN04

PATIENT
  Age: 24 Year
  Sex: Female

DRUGS (4)
  1. PANTOZOL (PANTOPRAZOLE, TABLET, DELAYED RELEASE) [Suspect]
     Indication: HELICOBACTER GASTRITIS
     Dosage: 40 MG 2X PER 1 DAY
     Route: 048
     Dates: start: 20031002, end: 20031008
  2. AMOXICILLIN [Suspect]
     Indication: HELICOBACTER GASTRITIS
     Dosage: 1000 MG 2X PER 1 DAY
     Route: 048
     Dates: start: 20031002, end: 20031008
  3. CLARITHROMYCIN [Suspect]
     Indication: HELICOBACTER GASTRITIS
     Dosage: 500 MG 2X PER 1 DAY
     Route: 048
     Dates: start: 20031002, end: 20031008
  4. CONTRACEPTIVE UNSPECIFIED [Concomitant]

REACTIONS (1)
  - DRUG ERUPTION [None]
